FAERS Safety Report 14311276 (Version 1)
Quarter: 2017Q4

REPORT INFORMATION
  Report Type: Spontaneous
  Country: US (occurrence: US)
  Receive Date: 20171221
  Receipt Date: 20171221
  Transmission Date: 20180321
  Serious: No
  Sender: FDA-Public Use
  Company Number: US-NOVEN PHARMACEUTICALS, INC.-US2016003123

PATIENT

DRUGS (1)
  1. MINIVELLE [Suspect]
     Active Substance: ESTRADIOL
     Indication: PRODUCT USED FOR UNKNOWN INDICATION
     Dosage: TWO 0.1 MG PATCHES, EVERY 48 HOURS
     Route: 062
     Dates: start: 2011, end: 201612

REACTIONS (12)
  - Wrong technique in product usage process [Recovered/Resolved]
  - Hot flush [Recovered/Resolved]
  - Application site rash [Recovered/Resolved]
  - Application site erythema [Recovered/Resolved]
  - Off label use [Unknown]
  - Hyperhidrosis [Recovered/Resolved]
  - Headache [Recovered/Resolved]
  - Application site pruritus [Recovered/Resolved]
  - Prescribed overdose [Recovered/Resolved]
  - Application site urticaria [Recovered/Resolved]
  - Drug dose omission [Not Recovered/Not Resolved]
  - Nausea [Recovered/Resolved]

NARRATIVE: CASE EVENT DATE: 2011
